FAERS Safety Report 21610777 (Version 2)
Quarter: 2022Q4

REPORT INFORMATION
  Report Type: Spontaneous
  Country: US (occurrence: US)
  Receive Date: 20221117
  Receipt Date: 20221201
  Transmission Date: 20230113
  Serious: Yes (Other)
  Sender: FDA-Public Use
  Company Number: US-AMERICAN REGENT INC-2022003287

PATIENT
  Age: 17 Year
  Sex: Female

DRUGS (2)
  1. VENOFER [Suspect]
     Active Substance: IRON SUCROSE
     Indication: Iron deficiency
     Dosage: 100MG, 20MG/ML-5ML - DILUTION100 ML 0.9%, 3-5 MIN INFUSION
     Dates: start: 20221109, end: 20221109
  2. OMEPRAZOLE [Concomitant]
     Active Substance: OMEPRAZOLE
     Indication: Gastritis
     Dosage: 20 MILLIGRAM
     Route: 048
     Dates: start: 202107

REACTIONS (8)
  - Gastrointestinal pain [Recovered/Resolved]
  - PO2 decreased [Unknown]
  - Heart rate increased [Unknown]
  - Chest discomfort [Unknown]
  - Dyspnoea [Unknown]
  - Feeling abnormal [Recovered/Resolved]
  - Cough [Recovered/Resolved]
  - Pain [Unknown]

NARRATIVE: CASE EVENT DATE: 20221109
